FAERS Safety Report 5694888-4 (Version None)
Quarter: 2008Q2

REPORT INFORMATION
  Report Type: 
  Country: None (occurrence: None)
  Receive Date: 20080404
  Receipt Date: 20080328
  Transmission Date: 20081010
  Serious: Yes (Other)
  Sender: FDA-Public Use
  Company Number: PHHY2008BR04107

PATIENT

DRUGS (4)
  1. CARBAMAZEPINE [Suspect]
     Indication: CONVULSION
     Dosage: 3 IN THE MORNING, 2 IN THE DAY, 3 AT NIGHT
     Route: 048
     Dates: start: 20010101, end: 20070501
  2. DIAZEPAM [Concomitant]
     Indication: CONVULSION
     Dosage: 10 MG, PRN
     Route: 048
  3. GARDENAL [Concomitant]
     Indication: CONVULSION
     Dosage: 100 MG, QHS
     Route: 048
  4. RIVOTRIL [Concomitant]
     Dosage: 20 DRP, QHS
     Route: 048

REACTIONS (7)
  - ABASIA [None]
  - BALANCE DISORDER [None]
  - COMMUNICATION DISORDER [None]
  - CONSTIPATION [None]
  - CONVULSION [None]
  - FALL [None]
  - LISTLESS [None]
